FAERS Safety Report 9217945 (Version 2)
Quarter: 2013Q2

REPORT INFORMATION
  Report Type: Spontaneous
  Country: DE (occurrence: DE)
  Receive Date: 20130408
  Receipt Date: 20130517
  Transmission Date: 20140414
  Serious: Yes (Death, Other)
  Sender: FDA-Public Use
  Company Number: DE-PFIZER INC-2013106510

PATIENT
  Age: 45 Year
  Sex: Female

DRUGS (2)
  1. ZELDOX [Suspect]
     Indication: SCHIZOPHRENIA
     Dosage: 80 MG, 2X/DAY
  2. ZELDOX [Suspect]
     Dosage: 120 MG, 2X/DAY
     Dates: start: 20110814

REACTIONS (8)
  - Overdose [Fatal]
  - Gastroenteritis norovirus [Fatal]
  - Depressed level of consciousness [Fatal]
  - Brain injury [Not Recovered/Not Resolved]
  - Electrocardiogram QT prolonged [Recovered/Resolved with Sequelae]
  - Resuscitation [Recovered/Resolved with Sequelae]
  - Ventricular fibrillation [Recovered/Resolved with Sequelae]
  - Dyspnoea exertional [Unknown]
